FAERS Safety Report 6235378-X (Version None)
Quarter: 2009Q2

REPORT INFORMATION
  Report Type: 
  Country: None (occurrence: None)
  Receive Date: 20090618
  Receipt Date: 20080602
  Transmission Date: 20091009
  Serious: No
  Sender: FDA-Public Use
  Company Number: US-ASTRAZENECA-2008UW11023

PATIENT
  Age: 64 Year
  Sex: Male
  Weight: 67.3 kg

DRUGS (18)
  1. ENTOCORT EC [Suspect]
     Indication: CROHN'S DISEASE
     Route: 048
     Dates: end: 20071019
  2. ENTOCORT EC [Suspect]
     Route: 048
     Dates: start: 20071031
  3. ADALIMUMAB (HUMIRA PEN) [Suspect]
     Indication: CROHN'S DISEASE
     Dosage: 40 MG/0.8 ML 160 MG STARTER DOSE
     Route: 058
  4. ADALIMUMAB (HUMIRA PEN) [Suspect]
     Route: 058
     Dates: start: 20071005
  5. ADALIMUMAB (HUMIRA PEN) [Suspect]
     Route: 058
  6. LEFLUNOMIDE [Concomitant]
  7. BLOOD PRESSURE PILL [Concomitant]
  8. METOPROLOL SUCCINATE [Concomitant]
     Route: 048
  9. ATORVASTATIN CALCIUM [Concomitant]
  10. VALSARTAN [Concomitant]
  11. FISH OIL [Concomitant]
  12. FOLIC ACID [Concomitant]
  13. LEVETIRACETAM [Concomitant]
  14. CLONAZEPAM [Concomitant]
  15. TRAMADOL HCL [Concomitant]
  16. MAGNESIUM SULFATE [Concomitant]
  17. M.V.I. [Concomitant]
     Route: 048
  18. CYANOCOBALAMIN-TANNIN COMPLEX [Concomitant]

REACTIONS (4)
  - ABDOMINAL DISTENSION [None]
  - CROHN'S DISEASE [None]
  - FLATULENCE [None]
  - WEIGHT DECREASED [None]
